FAERS Safety Report 8075704-2 (Version None)
Quarter: 2012Q1

REPORT INFORMATION
  Report Type: 
  Country: None (occurrence: None)
  Receive Date: 20120117
  Receipt Date: 20120117
  Transmission Date: 20120608
  Serious: Yes (Life-Threatening, Hospitalization)
  Sender: FDA-Public Use
  Company Number: 2012AP000042

PATIENT
  Age: 57 Year
  Sex: Male

DRUGS (2)
  1. CARBAMAZEPINE [Suspect]
     Indication: EPILEPSY
     Dosage: 400 MG;;BID;
  2. VALPROIC ACID [Suspect]
     Indication: EPILEPSY
     Dosage: 1500 MG;TID;

REACTIONS (5)
  - TOXICITY TO VARIOUS AGENTS [None]
  - GAMMA-GLUTAMYLTRANSFERASE INCREASED [None]
  - LOSS OF CONSCIOUSNESS [None]
  - APNOEA [None]
  - HYPERAMMONAEMIC ENCEPHALOPATHY [None]
